FAERS Safety Report 5499424-3 (Version None)
Quarter: 2007Q4

REPORT INFORMATION
  Report Type: 
  Country: None (occurrence: None)
  Receive Date: 20071026
  Receipt Date: 20071022
  Transmission Date: 20080405
  Serious: Yes (Hospitalization)
  Sender: FDA-Public Use
  Company Number: B0492739A

PATIENT
  Age: 62 Year
  Sex: Female
  Weight: 53 kg

DRUGS (11)
  1. LAPATINIB [Suspect]
     Dosage: 1500MG PER DAY
     Route: 048
     Dates: start: 20070719
  2. TAMOXIFEN CITRATE [Suspect]
     Dosage: 20MG PER DAY
     Route: 048
     Dates: start: 20070621
  3. IBUPROFEN [Concomitant]
     Indication: PAIN
     Dosage: 200MG AS REQUIRED
     Route: 048
     Dates: start: 20070623
  4. VALTRAN [Concomitant]
     Indication: PAIN
     Route: 048
     Dates: start: 20070623
  5. DAFALGAN [Concomitant]
     Indication: PAIN
     Dosage: 1G AS REQUIRED
     Route: 048
     Dates: start: 20070623
  6. MOTILIUM [Concomitant]
     Indication: NAUSEA
     Dosage: 10MG AS REQUIRED
     Route: 048
     Dates: start: 20070624
  7. MINIRIN [Concomitant]
     Indication: HYPOPHYSITIS
     Dates: start: 20060701
  8. CALCIUM D3 [Concomitant]
     Route: 048
     Dates: start: 20060701
  9. PANTOPRAZOLE SODIUM [Concomitant]
     Indication: PROPHYLAXIS
     Dosage: 20MG PER DAY
     Route: 048
     Dates: start: 20070702
  10. ZOLPIDEM TARTRATE [Concomitant]
     Indication: PROPHYLAXIS
     Dosage: 10MG AS REQUIRED
     Route: 048
     Dates: start: 20070707
  11. BONDRONAT [Concomitant]
     Route: 048
     Dates: start: 20031115

REACTIONS (1)
  - DEHYDRATION [None]
